FAERS Safety Report 21139443 (Version 2)
Quarter: 2022Q3

REPORT INFORMATION
  Report Type: Report from Study
  Country: PL (occurrence: PL)
  Receive Date: 20220727
  Receipt Date: 20220922
  Transmission Date: 20221026
  Serious: Yes (Hospitalization)
  Sender: FDA-Public Use
  Company Number: PL-G1-000496

PATIENT

DRUGS (36)
  1. TRILACICLIB [Suspect]
     Active Substance: TRILACICLIB
     Indication: Myelosuppression
     Dosage: 240 MG/M2 ON DAY 1 AND 2 OF EACH 14-DAY CYCLE
     Route: 041
     Dates: start: 20220209, end: 20220210
  2. TRILACICLIB [Suspect]
     Active Substance: TRILACICLIB
     Dosage: 240 MG/M2 ON DAY 1 AND 2 OF EACH 14-DAY CYCLE
     Route: 041
     Dates: start: 20220223, end: 20220224
  3. BEVACIZUMAB [Suspect]
     Active Substance: BEVACIZUMAB
     Indication: Rectal cancer metastatic
     Dosage: 5 MG/KG ON DAY 1 OF EACH 14-DAY CYCLE
     Route: 041
     Dates: start: 20220209, end: 20220209
  4. BEVACIZUMAB [Suspect]
     Active Substance: BEVACIZUMAB
     Dosage: 5 MG/KG ON DAY 1 OF EACH 14-DAY CYCLE
     Route: 041
     Dates: start: 20220223, end: 20220223
  5. IRINOTECAN [Suspect]
     Active Substance: IRINOTECAN
     Indication: Rectal cancer metastatic
     Dosage: 165 MG/M2 ON DAY 1 OF EACH 14-DAY CYCLE
     Route: 041
     Dates: start: 20220209
  6. IRINOTECAN [Suspect]
     Active Substance: IRINOTECAN
     Dosage: 165 MG/M2 ON DAY 1 OF EACH 14-DAY CYCLE
     Route: 041
     Dates: start: 20220223, end: 20220223
  7. OXALIPLATIN [Suspect]
     Active Substance: OXALIPLATIN
     Indication: Rectal cancer metastatic
     Dosage: 85 MG/M2 ON DAY 1 OF EACH 14-DAY CYCLE
     Route: 041
     Dates: start: 20220209, end: 20220209
  8. OXALIPLATIN [Suspect]
     Active Substance: OXALIPLATIN
     Dosage: 85 MG/M2 ON DAY 1 OF EACH 14-DAY CYCLE
     Route: 041
     Dates: start: 20220223, end: 20220223
  9. LEUCOVORIN [Suspect]
     Active Substance: LEUCOVORIN
     Indication: Rectal cancer metastatic
     Dosage: 400 MG/M2 ON DAY 1 OF EACH 14-DAY CYCLE
     Route: 041
     Dates: start: 20220209, end: 20220209
  10. LEUCOVORIN [Suspect]
     Active Substance: LEUCOVORIN
     Dosage: 400 MG/M2 ON DAY 1 OF EACH 14-DAY CYCLE
     Route: 041
     Dates: start: 20220223, end: 20220223
  11. FLUOROURACIL [Suspect]
     Active Substance: FLUOROURACIL
     Indication: Rectal cancer metastatic
     Dosage: 2400 MG/M2 BY CONTINUOUS INFUSION OVER 48 HOURS STARTING ON DAY 1 OF EACH 14 DAY CYCLE
     Route: 041
     Dates: start: 20220209, end: 20220211
  12. FLUOROURACIL [Suspect]
     Active Substance: FLUOROURACIL
     Dosage: 2400 MG/M2 BY CONTINUOUS INFUSION OVER 48 HOURS STARTING ON DAY 1 OF EACH 14 DAY CYCLE
     Route: 041
     Dates: start: 20220223, end: 20220225
  13. ENOXAPARIN SODIUM [Concomitant]
     Active Substance: ENOXAPARIN SODIUM
     Indication: Thrombosis prophylaxis
     Dosage: 40 MILLIGRAM, QD
     Route: 058
     Dates: start: 20220208
  14. ACETAMINOPHEN [Concomitant]
     Active Substance: ACETAMINOPHEN
     Indication: Pain
     Dosage: UNK
     Dates: start: 20220211, end: 20220211
  15. ATROPINE [Concomitant]
     Active Substance: ATROPINE
     Indication: Premedication
     Dosage: 0.25 MILLIGRAM, QD
     Route: 058
     Dates: start: 20220209, end: 20220209
  16. ATROPINE [Concomitant]
     Active Substance: ATROPINE
     Dosage: 0.25 MILLIGRAM, QD
     Route: 058
     Dates: start: 20220223, end: 20220223
  17. DEXAMETHASONE [Concomitant]
     Active Substance: DEXAMETHASONE
     Indication: Premedication
     Dosage: 8 MILLIGRAM, QD
     Route: 042
     Dates: start: 20220209, end: 20220210
  18. DEXAMETHASONE [Concomitant]
     Active Substance: DEXAMETHASONE
     Indication: Nausea
     Dosage: 8 MILLIGRAM, QD
     Route: 042
     Dates: start: 20220223, end: 20220224
  19. DEXAMETHASONE [Concomitant]
     Active Substance: DEXAMETHASONE
     Dosage: 8 MILLIGRAM, TID
     Route: 042
     Dates: start: 20220224, end: 20220225
  20. ONDANSETRON [Concomitant]
     Active Substance: ONDANSETRON
     Indication: Premedication
     Dosage: 8 MILLIGRAM, QD
     Route: 042
     Dates: start: 20220209, end: 20220210
  21. ONDANSETRON [Concomitant]
     Active Substance: ONDANSETRON
     Indication: Nausea
     Dosage: 8 MILLIGRAM, QD
     Route: 042
     Dates: start: 20220223, end: 20220224
  22. ONDANSETRON [Concomitant]
     Active Substance: ONDANSETRON
     Dosage: 8 MILLIGRAM, TID
     Route: 042
     Dates: start: 20220224, end: 20220225
  23. AUXILEN [Concomitant]
     Indication: Diaphragmalgia
     Dosage: 50 MILLIGRAM, QD
     Route: 042
     Dates: start: 20220209, end: 20220210
  24. METAMIZOLE SODIUM [Concomitant]
     Active Substance: METAMIZOLE SODIUM
     Indication: Diaphragmalgia
     Dosage: 1 GRAM, TID
     Route: 042
     Dates: start: 20220209, end: 20220210
  25. MORPHINE SULFATE [Concomitant]
     Active Substance: MORPHINE SULFATE
     Indication: Diaphragmalgia
     Dosage: 2.5 MILLIGRAM, BID
     Route: 058
     Dates: start: 20220210, end: 20220210
  26. MORPHINE SULFATE [Concomitant]
     Active Substance: MORPHINE SULFATE
     Indication: Cough
     Dosage: 5 MILLIGRAM, BID
     Route: 058
     Dates: start: 20220211, end: 20220211
  27. MORPHINE SULFATE [Concomitant]
     Active Substance: MORPHINE SULFATE
     Dosage: 5 MILLIGRAM, QD
     Route: 058
     Dates: start: 20220223, end: 20220223
  28. METOCLOPRAMIDE [Concomitant]
     Active Substance: METOCLOPRAMIDE
     Indication: Prophylaxis of nausea and vomiting
     Dosage: 10 MILLIGRAM, TID
     Route: 042
     Dates: start: 20220211, end: 20220211
  29. OMEPRAZOLE [Concomitant]
     Active Substance: OMEPRAZOLE
     Indication: Gastritis prophylaxis
     Dosage: 20 MILLIGRAM, QD
     Route: 048
     Dates: start: 20220210, end: 20220211
  30. OMEPRAZOLE [Concomitant]
     Active Substance: OMEPRAZOLE
     Dosage: 20 MILLIGRAM, QD
     Route: 048
     Dates: start: 20220223, end: 20220225
  31. SENZOP [Concomitant]
     Indication: Prophylaxis
     Dosage: 7.5 MILLIGRAM, QD
     Route: 048
     Dates: start: 20220210, end: 20220210
  32. OXYCODONE [Concomitant]
     Active Substance: OXYCODONE
     Indication: Diaphragmalgia
     Dosage: 20 MILLIGRAM, BID
     Route: 048
     Dates: start: 20220211, end: 20220211
  33. LYRICA [Concomitant]
     Active Substance: PREGABALIN
     Indication: Diaphragmalgia
     Dosage: 75 MILLIGRAM, BID
     Route: 048
     Dates: start: 20220211, end: 20220211
  34. ACETYLCYSTEINE [Concomitant]
     Active Substance: ACETYLCYSTEINE
     Indication: Cough
     Dosage: 600 MILLIGRAM, QD
     Route: 048
     Dates: start: 20220224, end: 20220224
  35. OLANZAPINE [Concomitant]
     Active Substance: OLANZAPINE
     Indication: Insomnia
     Dosage: 10 MILLIGRAM, QD
     Route: 048
     Dates: start: 20220224, end: 20220224
  36. ACCORDEON [Concomitant]
     Indication: Prophylaxis
     Dosage: 20 MILLIGRAM, BID
     Route: 048
     Dates: start: 20220223, end: 20220225

REACTIONS (1)
  - Infectious pleural effusion [Recovered/Resolved]

NARRATIVE: CASE EVENT DATE: 20220308
